FAERS Safety Report 14542115 (Version 1)
Quarter: 2018Q1

REPORT INFORMATION
  Report Type: Spontaneous
  Country: DE (occurrence: DE)
  Receive Date: 20180216
  Receipt Date: 20180216
  Transmission Date: 20180509
  Serious: Yes (Other)
  Sender: FDA-Public Use
  Company Number: DE-OTSUKA-DJ20123331

PATIENT

DRUGS (3)
  1. VALDOXAN [Concomitant]
     Active Substance: AGOMELATINE
     Route: 065
  2. ABILIFY [Suspect]
     Active Substance: ARIPIPRAZOLE
     Indication: DEPRESSION
     Route: 048
  3. ABILIFY [Suspect]
     Active Substance: ARIPIPRAZOLE
     Indication: SCHIZOPHRENIA

REACTIONS (6)
  - Visual impairment [Unknown]
  - Muscle spasms [Unknown]
  - Balance disorder [Unknown]
  - Restlessness [Unknown]
  - Suicidal ideation [Unknown]
  - Musculoskeletal stiffness [Unknown]
